FAERS Safety Report 22384902 (Version 1)
Quarter: 2023Q2

REPORT INFORMATION
  Report Type: Spontaneous
  Country: US (occurrence: None)
  Receive Date: 20230528
  Receipt Date: 20230528
  Transmission Date: 20230721
  Serious: Yes (Other)
  Sender: FDA-Public Use
  Company Number: None

PATIENT
  Age: 71 Year
  Sex: Male
  Weight: 98.55 kg

DRUGS (13)
  1. LEVAQUIN [Suspect]
     Active Substance: LEVOFLOXACIN
     Indication: Pneumonia
     Dates: start: 20221208, end: 20221211
  2. MAGNESIUM OXIDE [Concomitant]
     Active Substance: MAGNESIUM OXIDE
  3. PANTOPRAZOLE [Concomitant]
     Active Substance: PANTOPRAZOLE
  4. MYCOPHENOLIC ACID [Concomitant]
     Active Substance: MYCOPHENOLIC ACID
  5. VENLAFAXINE [Concomitant]
     Active Substance: VENLAFAXINE HYDROCHLORIDE
  6. CYCLOSPORINE [Concomitant]
     Active Substance: CYCLOSPORINE
  7. THIAMINE [Concomitant]
     Active Substance: THIAMINE
  8. LEVOTHYROXINE [Concomitant]
     Active Substance: LEVOTHYROXINE
  9. ASPIRIN [Concomitant]
     Active Substance: ASPIRIN
  10. ACAMPROSATE [Concomitant]
     Active Substance: ACAMPROSATE
  11. FERROUS SULFATE [Concomitant]
     Active Substance: FERROUS SULFATE
  12. MULTI-VITAMIN [Concomitant]
     Active Substance: .ALPHA.-TOCOPHEROL ACETATE, DL-\ASCORBIC ACID\CYANOCOBALAMIN\FLUORIDE ION\FOLIC ACID\NIACIN\PYRIDOXI
  13. ACETAMINOPHEN [Concomitant]
     Active Substance: ACETAMINOPHEN

REACTIONS (4)
  - Gait disturbance [None]
  - Pain in extremity [None]
  - Tendon injury [None]
  - Tendonitis [None]

NARRATIVE: CASE EVENT DATE: 20221209
